FAERS Safety Report 5482399-0 (Version None)
Quarter: 2007Q4

REPORT INFORMATION
  Report Type: 
  Country: None (occurrence: None)
  Receive Date: 20071011
  Receipt Date: 20071003
  Transmission Date: 20080405
  Serious: Yes (Hospitalization)
  Sender: FDA-Public Use
  Company Number: B0488172A

PATIENT
  Age: 60 Year
  Sex: Male
  Weight: 102 kg

DRUGS (6)
  1. AVANDAMET [Suspect]
     Indication: TYPE 2 DIABETES MELLITUS
     Dosage: 2TAB PER DAY
     Route: 048
     Dates: start: 20070613, end: 20070920
  2. HYPERIUM [Concomitant]
     Indication: HYPERTENSION
     Dosage: 2TAB PER DAY
     Route: 048
     Dates: start: 20040101
  3. TENSTATEN [Concomitant]
     Indication: HYPERTENSION
     Route: 048
     Dates: start: 20040101
  4. CARDENSIEL [Concomitant]
     Indication: HYPERTENSION
     Dosage: 7.5MG PER DAY
     Route: 048
     Dates: start: 20040101
  5. PREVISCAN [Concomitant]
     Indication: ATRIAL FIBRILLATION
     Dosage: .75UNIT PER DAY
     Route: 048
     Dates: start: 20040101
  6. COAPROVEL [Concomitant]
     Indication: HYPERTENSION
     Route: 048
     Dates: start: 20040101

REACTIONS (12)
  - ABDOMINAL DISTENSION [None]
  - ABDOMINAL PAIN [None]
  - BLOOD CHOLESTEROL INCREASED [None]
  - BLOOD GLUCOSE INCREASED [None]
  - BLOOD TRIGLYCERIDES INCREASED [None]
  - DYSPNOEA [None]
  - FLATULENCE [None]
  - INADEQUATE DIET [None]
  - LIPIDS INCREASED [None]
  - RESPIRATORY DISORDER [None]
  - TREATMENT NONCOMPLIANCE [None]
  - WEIGHT INCREASED [None]
